FAERS Safety Report 7127864-5 (Version None)
Quarter: 2010Q4

REPORT INFORMATION
  Report Type: 
  Country: None (occurrence: None)
  Receive Date: 20101029
  Receipt Date: 20100804
  Transmission Date: 20110411
  Serious: No
  Sender: FDA-Public Use
  Company Number: US-003384

PATIENT
  Sex: Male

DRUGS (2)
  1. FIRMAGON [Suspect]
     Indication: PRODUCT USED FOR UNKNOWN INDICATION
     Dosage: (80 MG 1X/MONTH SUBCUTANEOUS) ; (240 MG 1X SUBCUTANEOUS)
     Route: 058
     Dates: start: 20100712, end: 20100712
  2. FIRMAGON [Suspect]
     Indication: PRODUCT USED FOR UNKNOWN INDICATION
     Dosage: (80 MG 1X/MONTH SUBCUTANEOUS) ; (240 MG 1X SUBCUTANEOUS)
     Route: 058
     Dates: start: 20100727

REACTIONS (2)
  - MEDICATION ERROR [None]
  - NO ADVERSE EVENT [None]
